FAERS Safety Report 5426272-2 (Version None)
Quarter: 2007Q3

REPORT INFORMATION
  Report Type: 
  Country: None (occurrence: None)
  Receive Date: 20070827
  Receipt Date: 20070824
  Transmission Date: 20080115
  Serious: Yes (Other)
  Sender: FDA-Public Use
  Company Number: A0675440A

PATIENT
  Age: 61 Year
  Sex: Female

DRUGS (4)
  1. ALLI [Suspect]
     Indication: WEIGHT LOSS DIET
     Route: 048
     Dates: start: 20070616, end: 20070820
  2. SYNTHROID [Concomitant]
  3. ULTRACET [Concomitant]
  4. FOSAMAX [Concomitant]

REACTIONS (3)
  - FLATULENCE [None]
  - RECTAL DISCHARGE [None]
  - RECTAL HAEMORRHAGE [None]
